FAERS Safety Report 8832817 (Version 1)
Quarter: 2012Q4

REPORT INFORMATION
  Report Type: Spontaneous
  Country: US (occurrence: None)
  Receive Date: 20121009
  Receipt Date: 20121009
  Transmission Date: 20130627
  Serious: Yes (Hospitalization, Other)
  Sender: FDA-Public Use
  Company Number: None

PATIENT
  Age: 14 Year
  Sex: Female
  Weight: 44.91 kg

DRUGS (1)
  1. DEPAKOTE [Suspect]
     Indication: MIGRAINE
     Dates: start: 201202, end: 201209

REACTIONS (14)
  - Vision blurred [None]
  - Amnesia [None]
  - Headache [None]
  - Nausea [None]
  - Vomiting [None]
  - Metamorphopsia [None]
  - Aura [None]
  - Pyrexia [None]
  - Pain [None]
  - Abdominal pain upper [None]
  - Dizziness [None]
  - Confusional state [None]
  - Agitation [None]
  - Irritability [None]
